FAERS Safety Report 6849050-6 (Version None)
Quarter: 2010Q3

REPORT INFORMATION
  Report Type: 
  Country: None (occurrence: None)
  Receive Date: 20100716
  Receipt Date: 20071128
  Transmission Date: 20110219
  Serious: No
  Sender: FDA-Public Use
  Company Number: US-PFIZER INC-2007081644

PATIENT
  Sex: Female
  Weight: 135 kg

DRUGS (2)
  1. CHANTIX [Suspect]
     Indication: SMOKING CESSATION THERAPY
     Dates: start: 20070911
  2. AVAPRO [Concomitant]
     Indication: HYPERTENSION

REACTIONS (5)
  - CRYING [None]
  - DISTURBANCE IN ATTENTION [None]
  - EYE SWELLING [None]
  - FEELING ABNORMAL [None]
  - NAUSEA [None]
